FAERS Safety Report 12319756 (Version 4)
Quarter: 2017Q4

REPORT INFORMATION
  Report Type: Spontaneous
  Country: US (occurrence: US)
  Receive Date: 20160429
  Receipt Date: 20171027
  Transmission Date: 20180320
  Serious: No
  Sender: FDA-Public Use
  Company Number: US-ROCHE-1627806

PATIENT
  Sex: Female
  Weight: 77.18 kg

DRUGS (9)
  1. ESBRIET [Suspect]
     Active Substance: PIRFENIDONE
     Indication: IDIOPATHIC PULMONARY FIBROSIS
     Route: 048
     Dates: start: 20150504
  2. ESBRIET [Suspect]
     Active Substance: PIRFENIDONE
     Route: 048
     Dates: start: 201504
  3. LAMICTAL [Concomitant]
     Active Substance: LAMOTRIGINE
     Indication: BIPOLAR DISORDER
  4. EFFEXOR [Concomitant]
     Active Substance: VENLAFAXINE HYDROCHLORIDE
     Indication: DEPRESSION
  5. DIAZEPAM. [Concomitant]
     Active Substance: DIAZEPAM
  6. PERCOCET [Concomitant]
     Active Substance: ACETAMINOPHEN\OXYCODONE HYDROCHLORIDE
  7. VITAMIN D3 [Concomitant]
     Active Substance: CHOLECALCIFEROL
  8. OXYCONTIN [Concomitant]
     Active Substance: OXYCODONE HYDROCHLORIDE
  9. BENZONATATE. [Concomitant]
     Active Substance: BENZONATATE

REACTIONS (9)
  - Product storage error [Unknown]
  - Vision blurred [Not Recovered/Not Resolved]
  - Product packaging issue [Unknown]
  - Palpitations [Unknown]
  - Insomnia [Unknown]
  - Medication error [Unknown]
  - Product quality issue [Unknown]
  - Total lung capacity decreased [Not Recovered/Not Resolved]
  - Abdominal pain upper [Recovered/Resolved]
